FAERS Safety Report 4378909-7 (Version None)
Quarter: 2004Q2

REPORT INFORMATION
  Report Type: 
  Country: None (occurrence: None)
  Receive Date: 20040601
  Receipt Date: 20040202
  Transmission Date: 20050107
  Serious: No
  Sender: FDA-Public Use
  Company Number: WAES0402USA00092

PATIENT
  Age: 49 Year
  Sex: Male

DRUGS (1)
  1. ZETIA [Suspect]
     Dosage: 10 MG/DAILY/PO
     Route: 048
     Dates: start: 20031130, end: 20040130

REACTIONS (2)
  - BLOOD CREATINE PHOSPHOKINASE INCREASED [None]
  - MUSCULAR WEAKNESS [None]
